FAERS Safety Report 7259480-9 (Version None)
Quarter: 2011Q1

REPORT INFORMATION
  Report Type: 
  Country: None (occurrence: None)
  Receive Date: 20110129
  Receipt Date: 20100820
  Transmission Date: 20110831
  Serious: No
  Sender: FDA-Public Use
  Company Number: US-ABBOTT-10P-163-0666671-00

PATIENT
  Age: 18 Year
  Sex: Female

DRUGS (1)
  1. HUMIRA [Suspect]
     Indication: CROHN'S DISEASE
     Route: 058
     Dates: start: 20100501

REACTIONS (6)
  - IMPAIRED HEALING [None]
  - SINUSITIS [None]
  - SUBCUTANEOUS ABSCESS [None]
  - NASAL CONGESTION [None]
  - TOOTH ABSCESS [None]
  - NASAL POLYPS [None]
